FAERS Safety Report 4294067-1 (Version None)
Quarter: 2004Q1

REPORT INFORMATION
  Report Type: 
  Country: None (occurrence: None)
  Receive Date: 20040211
  Receipt Date: 20040126
  Transmission Date: 20041129
  Serious: Yes (Death)
  Sender: FDA-Public Use
  Company Number: DSA_23647_2003

PATIENT
  Age: 56 Year
  Sex: Male

DRUGS (3)
  1. ENALAPRIL MALEATE AND HYDROCHLOROTHIAZIDE [Suspect]
     Indication: HYPERTENSION
     Dosage: 1 TAB Q DAY PO
     Route: 048
     Dates: start: 19970822
  2. METOPROLOL-BC [Concomitant]
  3. ADALAT [Concomitant]

REACTIONS (2)
  - ANGIONEUROTIC OEDEMA [None]
  - BRAIN OEDEMA [None]
